FAERS Safety Report 7307576-5 (Version None)
Quarter: 2011Q1

REPORT INFORMATION
  Report Type: 
  Country: None (occurrence: None)
  Receive Date: 20110223
  Receipt Date: 20110216
  Transmission Date: 20110831
  Serious: Yes (Hospitalization, Other)
  Sender: FDA-Public Use
  Company Number: US-JNJFOC-20100210839

PATIENT
  Sex: Male

DRUGS (2)
  1. LEVAQUIN [Suspect]
     Indication: BACTERIAL INFECTION
     Route: 048
  2. LEVAQUIN [Suspect]
     Indication: ABSCESS
     Route: 042

REACTIONS (6)
  - TENDONITIS [None]
  - TENDON INJURY [None]
  - DEPRESSION [None]
  - ROTATOR CUFF SYNDROME [None]
  - ANXIETY [None]
  - PERIARTHRITIS [None]
